FAERS Safety Report 7064340-2 (Version None)
Quarter: 2010Q4

REPORT INFORMATION
  Report Type: 
  Country: None (occurrence: None)
  Receive Date: 20101027
  Receipt Date: 20101021
  Transmission Date: 20110411
  Serious: Yes (Death, Hospitalization, Other)
  Sender: FDA-Public Use
  Company Number: JP-MPIJNJ-2010-04207

PATIENT

DRUGS (12)
  1. VELCADE [Suspect]
     Indication: MULTIPLE MYELOMA
     Dosage: 1.7 MG, UNK
     Route: 042
     Dates: start: 20100716, end: 20100723
  2. DEXART [Concomitant]
     Indication: MULTIPLE MYELOMA
     Dosage: 13.2 MG, UNK
     Route: 042
     Dates: start: 20100716, end: 20100723
  3. DEXART [Concomitant]
     Dosage: 3.3 MG, UNK
     Route: 042
     Dates: start: 20100716, end: 20100723
  4. HARTMAN                            /02337901/ [Concomitant]
     Indication: PROPHYLAXIS
     Dosage: 1000 ML, UNK
     Route: 042
     Dates: start: 20100716, end: 20100720
  5. METHYCOBAL                         /00324901/ [Concomitant]
     Indication: NEUROPATHY PERIPHERAL
     Dosage: 3 DF, UNK
     Route: 048
     Dates: end: 20100725
  6. PYDOXAL [Concomitant]
     Indication: NEUROPATHY PERIPHERAL
     Dosage: 3 DF, UNK
     Route: 048
     Dates: end: 20100725
  7. EPINASTINE HYDROCHLORIDE [Concomitant]
     Indication: RHINITIS ALLERGIC
     Dosage: 20 MG, UNK
     Route: 048
     Dates: end: 20100725
  8. TAGAMET                            /00397401/ [Concomitant]
     Indication: PROPHYLAXIS
     Dosage: 400 MG, UNK
     Route: 048
     Dates: end: 20100725
  9. ISONIAZID [Concomitant]
     Indication: PROPHYLAXIS
     Dosage: 100 MG, UNK
     Route: 048
     Dates: end: 20100725
  10. BAKTAR [Concomitant]
     Indication: MULTIPLE MYELOMA
     Dosage: 1 DF, UNK
     Route: 048
     Dates: end: 20100725
  11. ALLOPURINOL [Concomitant]
     Indication: HYPERURICAEMIA
     Dosage: 300 MG, UNK
     Route: 048
     Dates: end: 20100725
  12. LORCAM [Concomitant]
     Indication: LUMBAR VERTEBRAL FRACTURE
     Dosage: 12 MG, UNK
     Route: 048
     Dates: end: 20100725

REACTIONS (3)
  - DIARRHOEA [None]
  - ILEUS [None]
  - PNEUMONIA ASPIRATION [None]
